FAERS Safety Report 20568065 (Version 1)
Quarter: 2022Q1

REPORT INFORMATION
  Report Type: Report from Study
  Country: FR (occurrence: FR)
  Receive Date: 20220308
  Receipt Date: 20220308
  Transmission Date: 20220423
  Serious: Yes (Other)
  Sender: FDA-Public Use
  Company Number: FR-NOVARTISPH-NVSC2022FR052706

PATIENT
  Sex: Male
  Weight: 69 kg

DRUGS (1)
  1. TABRECTA [Suspect]
     Active Substance: CAPMATINIB
     Indication: Adenocarcinoma
     Dosage: 300 MG, BID (400 MG IN THE MORNING AND 200 MG IN THE EVENING)
     Route: 048
     Dates: start: 20211001, end: 20220110

REACTIONS (2)
  - Bursal fluid accumulation [Not Recovered/Not Resolved]
  - Oedema peripheral [Not Recovered/Not Resolved]
